FAERS Safety Report 8268401-1 (Version None)
Quarter: 2012Q2

REPORT INFORMATION
  Report Type: 
  Country: None (occurrence: None)
  Receive Date: 20120409
  Receipt Date: 20120403
  Transmission Date: 20120825
  Serious: No
  Sender: FDA-Public Use
  Company Number: US-PFIZER INC-2012084731

PATIENT
  Sex: Male

DRUGS (1)
  1. CHILDREN'S ADVIL [Suspect]
     Dosage: UNK
     Route: 048
     Dates: start: 20000101

REACTIONS (2)
  - SWELLING FACE [None]
  - SWOLLEN TONGUE [None]
